FAERS Safety Report 6158296-4 (Version None)
Quarter: 2009Q2

REPORT INFORMATION
  Report Type: 
  Country: None (occurrence: None)
  Receive Date: 20090417
  Receipt Date: 20090408
  Transmission Date: 20091009
  Serious: Yes (Death)
  Sender: FDA-Public Use
  Company Number: US-BAYER-200917264NA

PATIENT
  Sex: Female

DRUGS (1)
  1. BETASERON [Suspect]
     Indication: MULTIPLE SCLEROSIS
     Dates: start: 19940101, end: 20080426

REACTIONS (5)
  - AMYOTROPHIC LATERAL SCLEROSIS [None]
  - APHAGIA [None]
  - DIAPHRAGMATIC DISORDER [None]
  - DYSPNOEA [None]
  - MOTOR DYSFUNCTION [None]
